FAERS Safety Report 5747254-7 (Version None)
Quarter: 2008Q2

REPORT INFORMATION
  Report Type: 
  Country: None (occurrence: None)
  Receive Date: 20080520
  Receipt Date: 20080424
  Transmission Date: 20081010
  Serious: No
  Sender: FDA-Public Use
  Company Number: 003#1#2008-00069

PATIENT
  Age: 71 Year
  Sex: Female

DRUGS (7)
  1. NEUPRO [Suspect]
     Indication: PARKINSON'S DISEASE
     Dosage: 16 MG/24H (8 MG/24H 2 IN 1 DAY (S)) TRANSDERMAL
     Route: 062
  2. DONEPEZIL (DONEPEZIL HYDROCHLORIDE) [Concomitant]
  3. NIZATIDINE [Concomitant]
  4. TOLTERODINE TARTRATE [Concomitant]
  5. BENSARAZIDE HYDROCHLORIDE, LEVODOPA (BENSERAZIDE HYDROCHLORIDE, LEVODO [Concomitant]
  6. ENTACAPONE (ENTACAPONE) [Concomitant]
  7. CODEINE PHOSPHATE, PARACETAMOL (CODEINE PHOSPHATE, PARACETAMOL) [Concomitant]

REACTIONS (6)
  - DRUG EFFECT DECREASED [None]
  - GAIT DISTURBANCE [None]
  - MALAISE [None]
  - MOVEMENT DISORDER [None]
  - PHARMACEUTICAL PRODUCT COMPLAINT [None]
  - SENSATION OF HEAVINESS [None]
